FAERS Safety Report 8883730 (Version 4)
Quarter: 2013Q2

REPORT INFORMATION
  Report Type: Spontaneous
  Country: US (occurrence: US)
  Receive Date: 20121102
  Receipt Date: 20130418
  Transmission Date: 20140414
  Serious: Yes (Hospitalization, Disabling, Other)
  Sender: FDA-Public Use
  Company Number: US-GLAXOSMITHKLINE-A0996494A

PATIENT
  Age: 62 Year
  Sex: Female
  Weight: 58.2 kg

DRUGS (8)
  1. HORIZANT [Suspect]
     Indication: RESTLESS LEGS SYNDROME
     Dosage: 600MG PER DAY
     Route: 048
     Dates: start: 201208
  2. SAVELLA [Suspect]
     Indication: PRODUCT USED FOR UNKNOWN INDICATION
     Route: 065
     Dates: end: 201209
  3. NEURONTIN [Concomitant]
     Indication: RESTLESS LEGS SYNDROME
     Route: 065
  4. ATENOLOL [Concomitant]
  5. BACLOFEN [Concomitant]
     Indication: FIBROMYALGIA
     Dosage: 10MG AS REQUIRED
     Route: 048
     Dates: start: 2007
  6. HYDROCODONE [Concomitant]
  7. KLONOPIN [Concomitant]
     Indication: RESTLESS LEGS SYNDROME
     Dosage: 1MG AS REQUIRED
     Route: 048
     Dates: start: 2005
  8. VICODIN [Concomitant]
     Indication: FIBROMYALGIA
     Route: 048
     Dates: start: 2007

REACTIONS (7)
  - Acute myocardial infarction [Recovering/Resolving]
  - Depression [Recovered/Resolved]
  - Insomnia [Recovering/Resolving]
  - Energy increased [Recovering/Resolving]
  - Arterial occlusive disease [Recovering/Resolving]
  - Drug ineffective [Unknown]
  - Therapeutic response unexpected [Unknown]
